FAERS Safety Report 4692311-X (Version None)
Quarter: 2005Q2

REPORT INFORMATION
  Report Type: 
  Country: None (occurrence: None)
  Receive Date: 20050614
  Receipt Date: 20050601
  Transmission Date: 20051028
  Serious: Yes (Hospitalization)
  Sender: FDA-Public Use
  Company Number: MEDI-0003430

PATIENT
  Age: 54 Year
  Sex: Male

DRUGS (6)
  1. ETHYOL [Suspect]
     Indication: CHEMOTHERAPY
     Dosage: 390 MG, 5 IN 1 WK, INTRAVENOUS
     Route: 042
     Dates: start: 20050404, end: 20050511
  2. ETHYOL [Suspect]
     Indication: RADIOTHERAPY
     Dosage: 390 MG, 5 IN 1 WK, INTRAVENOUS
     Route: 042
     Dates: start: 20050404, end: 20050511
  3. CISPLATIN [Concomitant]
  4. RADIATION THERAPY [Concomitant]
  5. AOPHREN (ONDANSETRON HYDROCHLORIDE) [Concomitant]
  6. SOLU-MEDROL [Concomitant]

REACTIONS (6)
  - BLOOD CULTURE POSITIVE [None]
  - CONJUNCTIVAL EROSION [None]
  - MUCOSAL EROSION [None]
  - SKIN NECROSIS [None]
  - STAPHYLOCOCCAL INFECTION [None]
  - TOXIC SKIN ERUPTION [None]
